FAERS Safety Report 4718179-0 (Version None)
Quarter: 2005Q3

REPORT INFORMATION
  Report Type: 
  Country: None (occurrence: None)
  Receive Date: 20050720
  Receipt Date: 20050530
  Transmission Date: 20060218
  Serious: Yes (Hospitalization)
  Sender: FDA-Public Use
  Company Number: DE-ROCHE-405987

PATIENT
  Age: 44 Year
  Sex: Male
  Weight: 78 kg

DRUGS (3)
  1. CELLCEPT [Suspect]
     Route: 048
     Dates: start: 20050512
  2. CYCLOSPORINE [Suspect]
     Route: 065
  3. TACROLIMUS [Suspect]
     Route: 065
     Dates: start: 20050512

REACTIONS (1)
  - HAEMOLYTIC ANAEMIA [None]
